FAERS Safety Report 13727382 (Version 3)
Quarter: 2017Q3

REPORT INFORMATION
  Report Type: Report from Study
  Country: US (occurrence: US)
  Receive Date: 20170707
  Receipt Date: 20170910
  Transmission Date: 20171127
  Serious: Yes (Other)
  Sender: FDA-Public Use
  Company Number: US-AMGEN-USASL2017090789

PATIENT
  Age: 58 Year
  Sex: Female

DRUGS (2)
  1. TURMERIC [Concomitant]
     Active Substance: HERBALS\TURMERIC
     Dosage: UNK
  2. NPLATE [Suspect]
     Active Substance: ROMIPLOSTIM
     Indication: IMMUNE THROMBOCYTOPENIC PURPURA
     Dosage: UNK, QWK
     Route: 065

REACTIONS (29)
  - Hepatic cirrhosis [Recovering/Resolving]
  - Contusion [Unknown]
  - Procedural pain [Recovering/Resolving]
  - Blood iron increased [Recovering/Resolving]
  - Liver disorder [Unknown]
  - Localised infection [Unknown]
  - Dysstasia [Recovering/Resolving]
  - Injection site erythema [Unknown]
  - Diarrhoea [Unknown]
  - Procedural hypotension [Recovering/Resolving]
  - Haemorrhage [Unknown]
  - Amnesia [Unknown]
  - Ammonia increased [Recovering/Resolving]
  - Sinusitis [Unknown]
  - Increased tendency to bruise [Unknown]
  - Musculoskeletal disorder [Recovering/Resolving]
  - Hepatic pain [Unknown]
  - Mass [Recovering/Resolving]
  - Cough [Recovering/Resolving]
  - Pain [Unknown]
  - Muscle spasms [Unknown]
  - Pruritus [Unknown]
  - Hypotension [Unknown]
  - Injection site bruising [Unknown]
  - Fatigue [Unknown]
  - Platelet count abnormal [Unknown]
  - Scratch [Unknown]
  - Spondylitis [Unknown]
  - Petechiae [Unknown]
